FAERS Safety Report 24838217 (Version 2)
Quarter: 2025Q1

REPORT INFORMATION
  Report Type: Spontaneous
  Country: US (occurrence: US)
  Receive Date: 20250113
  Receipt Date: 20250123
  Transmission Date: 20250409
  Serious: Yes (Hospitalization)
  Sender: NIPPON SHINYAKU
  Company Number: US-NIPPON SHINYAKU-NIP-2024-000067

PATIENT
  Age: 15 Year
  Sex: Male

DRUGS (2)
  1. VILTEPSO [Suspect]
     Active Substance: VILTOLARSEN
     Indication: Duchenne muscular dystrophy
     Dosage: 3500 MG, QWK
     Route: 041
  2. VILTEPSO [Suspect]
     Active Substance: VILTOLARSEN
     Dosage: 80 MG/KG, QWK
     Route: 042

REACTIONS (2)
  - Pneumonia [Unknown]
  - Pyrexia [Unknown]

NARRATIVE: CASE EVENT DATE: 20241201
